FAERS Safety Report 8141875-2 (Version None)
Quarter: 2012Q1

REPORT INFORMATION
  Report Type: 
  Country: None (occurrence: None)
  Receive Date: 20120216
  Receipt Date: 20120214
  Transmission Date: 20120608
  Serious: Yes (Life-Threatening, Hospitalization)
  Sender: FDA-Public Use
  Company Number: LB-SANOFI-AVENTIS-2012SA009880

PATIENT
  Age: 72 Year
  Sex: Female
  Weight: 74 kg

DRUGS (3)
  1. OXALIPLATIN [Suspect]
     Route: 042
     Dates: start: 20120202, end: 20120202
  2. XELODA [Suspect]
     Route: 042
     Dates: start: 20120202, end: 20120202
  3. AMLODIPINE BESYLATE [Concomitant]
     Dates: start: 20080101

REACTIONS (1)
  - INTESTINAL PERFORATION [None]
